FAERS Safety Report 4483413-1 (Version None)
Quarter: 2004Q4

REPORT INFORMATION
  Report Type: 
  Country: None (occurrence: None)
  Receive Date: 20041020
  Receipt Date: 20041005
  Transmission Date: 20050328
  Serious: Yes (Other)
  Sender: FDA-Public Use
  Company Number: USA041080197

PATIENT
  Age: 49 Year
  Sex: Female

DRUGS (2)
  1. PROZAC [Suspect]
     Indication: DEPRESSION
  2. LISINOPRIL [Concomitant]

REACTIONS (4)
  - BLINDNESS UNILATERAL [None]
  - OPTIC ATROPHY [None]
  - RETINAL ISCHAEMIA [None]
  - VISUAL FIELD DEFECT [None]
